FAERS Safety Report 7885868-9 (Version None)
Quarter: 2011Q4

REPORT INFORMATION
  Report Type: 
  Country: None (occurrence: None)
  Receive Date: 20111102
  Receipt Date: 20110701
  Transmission Date: 20120403
  Serious: No
  Sender: FDA-Public Use
  Company Number: US-AMGEN-USASP2011033745

PATIENT
  Age: 55 Year
  Sex: Female

DRUGS (2)
  1. ENBREL [Suspect]
     Indication: PSORIASIS
     Dosage: 50 MG, 2 TIMES/WK
     Dates: start: 20110629, end: 20110713
  2. TREXALL [Concomitant]
     Dosage: UNK
     Dates: start: 20110701

REACTIONS (5)
  - DRUG INEFFECTIVE [None]
  - NASOPHARYNGITIS [None]
  - OROPHARYNGEAL PAIN [None]
  - PSORIASIS [None]
  - PRURITUS GENERALISED [None]
